FAERS Safety Report 7484957-0 (Version None)
Quarter: 2011Q2

REPORT INFORMATION
  Report Type: 
  Country: None (occurrence: None)
  Receive Date: 20110517
  Receipt Date: 20101005
  Transmission Date: 20111010
  Serious: No
  Sender: FDA-Public Use
  Company Number: US-BAYER-201022520BCC

PATIENT
  Sex: Female

DRUGS (4)
  1. MULTI-VITAMINS [Concomitant]
  2. DIOVAN [Concomitant]
  3. ALEVE [Suspect]
     Indication: BACK PAIN
     Dosage: 1 TABLET OF ALEVE AND 2 HOURS LATER THEY TOOK 1 ADDITIONAL
     Route: 048
  4. PRAVASTATIN [Concomitant]
     Dosage: UNK

REACTIONS (1)
  - BACK DISORDER [None]
